FAERS Safety Report 4342834-8 (Version None)
Quarter: 2004Q2

REPORT INFORMATION
  Report Type: 
  Country: None (occurrence: None)
  Receive Date: 20040416
  Receipt Date: 20040406
  Transmission Date: 20050107
  Serious: Yes (Other)
  Sender: FDA-Public Use
  Company Number: 2003176273US

PATIENT
  Age: 15 Year
  Sex: Female

DRUGS (1)
  1. BEXTRA [Suspect]
     Indication: DYSMENORRHOEA
     Dosage: ORAL
     Route: 048
     Dates: start: 20030207, end: 20030207

REACTIONS (12)
  - ABDOMINAL PAIN UPPER [None]
  - ACNE [None]
  - ANAPHYLACTIC SHOCK [None]
  - APHTHOUS STOMATITIS [None]
  - CROSS SENSITIVITY REACTION [None]
  - DYSPEPSIA [None]
  - EPISTAXIS [None]
  - GASTRITIS [None]
  - LUNG INFILTRATION [None]
  - PYREXIA [None]
  - STEVENS-JOHNSON SYNDROME [None]
  - VOMITING [None]
